FAERS Safety Report 4404885-4 (Version None)
Quarter: 2004Q3

REPORT INFORMATION
  Report Type: 
  Country: None (occurrence: None)
  Receive Date: 20040716
  Receipt Date: 20040706
  Transmission Date: 20050211
  Serious: Yes (Death, Hospitalization, Other)
  Sender: FDA-Public Use
  Company Number: 2004040176

PATIENT
  Age: 68 Year
  Sex: Male

DRUGS (10)
  1. NEURONTIN [Suspect]
     Indication: PAIN
     Dosage: (DAILY)
     Dates: start: 20040301, end: 20040601
  2. FUROSEMIDE [Concomitant]
  3. POTASSIUM CHLORIDE [Concomitant]
  4. LEVOTHYROXINE SODIUM [Concomitant]
  5. PAROXETINE HCL [Concomitant]
  6. CLOPIDOGREL BISULFATE [Concomitant]
  7. ADVICOR - SLOW RELEASE (LOVASTATIN, NICOTINIC ACID [Concomitant]
  8. ACETYLSALICYLIC ACID SRT [Concomitant]
  9. OXYCODONE HCL [Concomitant]
  10. OXYCOCET (OXYCODONE HYDROCHLORIDE, PARACETAMOL) [Concomitant]

REACTIONS (11)
  - CARDIAC FAILURE CONGESTIVE [None]
  - CONFUSIONAL STATE [None]
  - DISORIENTATION [None]
  - FEELING ABNORMAL [None]
  - GAIT DISTURBANCE [None]
  - LUNG NEOPLASM MALIGNANT [None]
  - MENTAL DISORDER [None]
  - MIOSIS [None]
  - PROSTATE CANCER [None]
  - PUPILLARY REFLEX IMPAIRED [None]
  - TREMOR [None]
